FAERS Safety Report 6208231-5 (Version None)
Quarter: 2009Q2

REPORT INFORMATION
  Report Type: 
  Country: None (occurrence: None)
  Receive Date: 20090529
  Receipt Date: 20090526
  Transmission Date: 20091009
  Serious: Yes (Other)
  Sender: FDA-Public Use
  Company Number: US-ASTRAZENECA-2009UW03978

PATIENT
  Age: 20887 Day
  Sex: Male
  Weight: 86.2 kg

DRUGS (7)
  1. SEROQUEL [Suspect]
     Indication: SLEEP DISORDER
     Route: 048
     Dates: start: 20080101, end: 20080901
  2. SEROQUEL [Suspect]
     Dosage: 100MG
     Route: 048
  3. SEROQUEL [Suspect]
     Dosage: 50MG
     Route: 048
  4. SEROQUEL [Suspect]
     Dosage: 25MG
     Route: 048
  5. DILANTIN [Concomitant]
     Route: 048
  6. SYNTHROID [Concomitant]
  7. VASOTEC [Concomitant]
     Route: 048

REACTIONS (5)
  - CATARACT [None]
  - EYE OPERATION [None]
  - SOMNOLENCE [None]
  - STRABISMUS [None]
  - VISUAL ACUITY REDUCED [None]
